FAERS Safety Report 7199377-6 (Version None)
Quarter: 2010Q4

REPORT INFORMATION
  Report Type: 
  Country: None (occurrence: None)
  Receive Date: 20101215
  Receipt Date: 20101208
  Transmission Date: 20110411
  Serious: Yes (Other)
  Sender: FDA-Public Use
  Company Number: 2010SP063641

PATIENT
  Age: 53 Year
  Sex: Female

DRUGS (5)
  1. DEXAMETHASONE [Suspect]
     Indication: PRODUCT USED FOR UNKNOWN INDICATION
  2. BUPIVACAINE (BUPIVACAINE) [Suspect]
     Indication: SPINAL ANAESTHESIA
     Dosage: 2.5 ML;
  3. DIAMORPHINE (DIAMORPHINE) [Suspect]
     Indication: PRODUCT USED FOR UNKNOWN INDICATION
     Dosage: 300 MCG;
  4. OESTRADIOL (ESTRADIOL /00045401/) [Suspect]
     Indication: PRODUCT USED FOR UNKNOWN INDICATION
  5. BENDROFLUAZIDE [Concomitant]

REACTIONS (2)
  - MYOCLONUS [None]
  - NEUROTOXICITY [None]
